FAERS Safety Report 7439291-1 (Version None)
Quarter: 2011Q2

REPORT INFORMATION
  Report Type: 
  Country: None (occurrence: None)
  Receive Date: 20110427
  Receipt Date: 20091122
  Transmission Date: 20111010
  Serious: Yes (Death, Other)
  Sender: FDA-Public Use
  Company Number: US-BAYER-200940382NA

PATIENT
  Age: 77 Year
  Sex: Female
  Weight: 65.76 kg

DRUGS (17)
  1. PLATELETS [Concomitant]
     Dosage: 2 UNITS
     Dates: start: 20061011
  2. TRASYLOL [Suspect]
     Indication: AORTIC VALVE REPLACEMENT
  3. HEPARIN [Concomitant]
     Dosage: 10,000 UNITS CARDIOPULMONARY BYPASS
     Dates: start: 20061011, end: 20061011
  4. NICARDIPINE HCL [Concomitant]
     Dosage: UNK
     Dates: start: 20061012
  5. HEPARIN [Concomitant]
     Dosage: 20,000 UNITS
     Route: 042
     Dates: start: 20061011
  6. MANNITOL [Concomitant]
     Dosage: 12.5 GRAMS CARDIOPULMONARY BYPASS
     Dates: start: 20061011, end: 20061011
  7. ANCEF [Concomitant]
     Dosage: 1 GRAM
     Route: 042
     Dates: start: 20061011
  8. RED BLOOD CELLS, CONCENTRATED [Concomitant]
     Dosage: 7 UNITS
     Dates: start: 20061011
  9. DOPAMINE HCL [Concomitant]
     Dosage: RATE VARIED
     Route: 042
     Dates: start: 20061011
  10. DILANTIN [Concomitant]
     Dosage: UNK
     Dates: start: 20061012
  11. NITROGLYCERIN [Concomitant]
     Dosage: UNK
     Route: 042
     Dates: start: 20061011
  12. TRASYLOL [Suspect]
     Indication: CORONARY ARTERY BYPASS
     Dosage: 400 ML LOADING DOSE FOLLOWED BY 50 ML / HOUR DRIP
     Route: 042
     Dates: start: 20061011, end: 20061011
  13. FRESH FROZEN PLASMA [Concomitant]
     Dosage: 2 UNITS
     Dates: start: 20061011
  14. SODIUM NITROPRUSSIDE [Concomitant]
     Dosage: UNK
     Dates: end: 20061012
  15. BENADRYL [Concomitant]
     Dosage: 50 MG
     Route: 042
     Dates: start: 20061011
  16. SOLU-MEDROL [Concomitant]
     Dosage: 1 GRAM CARDIOPULMONARY BYPASS
     Dates: start: 20061011, end: 20061011
  17. GENTAMICIN [Concomitant]
     Dosage: 80 MG
     Route: 042
     Dates: start: 20061011

REACTIONS (14)
  - EMOTIONAL DISTRESS [None]
  - INJURY [None]
  - MULTI-ORGAN FAILURE [None]
  - UNEVALUABLE EVENT [None]
  - FEAR [None]
  - DEATH [None]
  - STRESS [None]
  - PAIN [None]
  - ANXIETY [None]
  - RENAL IMPAIRMENT [None]
  - RENAL INJURY [None]
  - RENAL FAILURE [None]
  - CARDIOGENIC SHOCK [None]
  - ANHEDONIA [None]
